FAERS Safety Report 20847459 (Version 1)
Quarter: 2022Q2

REPORT INFORMATION
  Report Type: Spontaneous
  Country: US (occurrence: US)
  Receive Date: 20220519
  Receipt Date: 20220519
  Transmission Date: 20220720
  Serious: No
  Sender: FDA-Public Use
  Company Number: US-BoehringerIngelheim-2022-BI-170766

PATIENT
  Age: 95 Year
  Sex: Female

DRUGS (6)
  1. STIOLTO RESPIMAT [Suspect]
     Active Substance: OLODATEROL HYDROCHLORIDE\TIOTROPIUM BROMIDE MONOHYDRATE
     Indication: Chronic obstructive pulmonary disease
     Dosage: 2 INHALATIONS
     Dates: start: 2022
  2. ELIQUIS [Concomitant]
     Active Substance: APIXABAN
     Indication: Product used for unknown indication
  3. METOPROLOL [Concomitant]
     Active Substance: METOPROLOL
     Indication: Product used for unknown indication
     Dosage: 1 TABLET IN THE AM, 2 TABLETS IN THE PM
  4. Vitamin D2[-Zinc-Vitamin C] [Concomitant]
     Indication: Product used for unknown indication
     Dosage: 1 TABLET ON SUNDAY EVENINGS, SPLIT IN HALF
  5. [Vitamin D2-]Zinc[-Vitamin C] [Concomitant]
     Indication: Product used for unknown indication
     Dosage: 1 TABLET ON SUNDAY EVENINGS, SPLIT IN HALF
  6. [Vitamin D2-Zinc-]Vitamin C [Concomitant]
     Indication: Product used for unknown indication
     Dosage: 1 TABLET ON SUNDAY EVENINGS, SPLIT IN HALF

REACTIONS (1)
  - Ocular discomfort [Unknown]

NARRATIVE: CASE EVENT DATE: 20220511
